FAERS Safety Report 17639024 (Version 2)
Quarter: 2020Q2

REPORT INFORMATION
  Report Type: Report from Study
  Country: None (occurrence: US)
  Receive Date: 20200407
  Receipt Date: 20200505
  Transmission Date: 20200713
  Serious: Yes (Hospitalization)
  Sender: FDA-Public Use
  Company Number: US-ABBVIE-20K-163-3308269-00

PATIENT
  Age: 80 Year
  Sex: Female

DRUGS (1)
  1. HUMIRA [Suspect]
     Active Substance: ADALIMUMAB
     Indication: RHEUMATOID ARTHRITIS
     Route: 058

REACTIONS (14)
  - Neck injury [Recovering/Resolving]
  - Diabetes mellitus [Recovering/Resolving]
  - Pain [Unknown]
  - Balance disorder [Unknown]
  - Back injury [Recovering/Resolving]
  - Wound [Recovering/Resolving]
  - Erythema [Recovering/Resolving]
  - Gait inability [Unknown]
  - Retching [Not Recovered/Not Resolved]
  - Fall [Recovering/Resolving]
  - Nausea [Not Recovered/Not Resolved]
  - Vomiting [Not Recovered/Not Resolved]
  - Malaise [Not Recovered/Not Resolved]
  - Head injury [Recovering/Resolving]

NARRATIVE: CASE EVENT DATE: 20200303
